FAERS Safety Report 7636045-8 (Version None)
Quarter: 2011Q3

REPORT INFORMATION
  Report Type: 
  Country: None (occurrence: None)
  Receive Date: 20110726
  Receipt Date: 20110715
  Transmission Date: 20111222
  Serious: Yes (Hospitalization)
  Sender: FDA-Public Use
  Company Number: US-ROCHE-780628

PATIENT

DRUGS (9)
  1. MS CONTIN [Concomitant]
  2. MEGESTROL ACETATE [Concomitant]
  3. DOCUSATE [Concomitant]
  4. CYCLOPHOSPHAMIDE [Suspect]
     Indication: BREAST CANCER
     Dosage: LAST DOSE PRIOR TO SAE: 15 JUNE 2011.
     Route: 065
     Dates: start: 20110302
  5. BEVACIZUMAB [Suspect]
     Indication: BREAST CANCER
     Dosage: LAST DOSE PRIOR TO SAE: 15 JUNE 2011.
     Route: 065
     Dates: start: 20110302
  6. TESSALON [Concomitant]
  7. DOCETAXEL [Suspect]
     Indication: BREAST CANCER
     Dosage: LAST DOSE PRIOR TO SAE: 15 JUNE 2011.
     Route: 065
     Dates: start: 20110302
  8. PIPERACILLIN [Suspect]
     Route: 065
     Dates: start: 20110610
  9. PERCOCET [Concomitant]

REACTIONS (8)
  - PAIN [None]
  - UPPER RESPIRATORY TRACT INFECTION [None]
  - PLEURAL EFFUSION [None]
  - PYREXIA [None]
  - MUSCULAR WEAKNESS [None]
  - FEBRILE NEUTROPENIA [None]
  - ABDOMINAL PAIN [None]
  - MUSCULOSKELETAL CHEST PAIN [None]
